FAERS Safety Report 17575477 (Version 5)
Quarter: 2022Q1

REPORT INFORMATION
  Report Type: Spontaneous
  Country: PT (occurrence: PT)
  Receive Date: 20200324
  Receipt Date: 20220317
  Transmission Date: 20220423
  Serious: Yes (Life-Threatening, Hospitalization, Disabling, Other)
  Sender: FDA-Public Use
  Company Number: PT-MYLANLABS-2020M1028434

PATIENT
  Age: 81 Year
  Sex: Female

DRUGS (2)
  1. METFORMIN HYDROCHLORIDE [Suspect]
     Active Substance: METFORMIN HYDROCHLORIDE
     Indication: Type 2 diabetes mellitus
     Dosage: 500 MILLIGRAM, TWO TIMES A DAY
     Route: 065
  2. METFORMIN HYDROCHLORIDE [Suspect]
     Active Substance: METFORMIN HYDROCHLORIDE
     Indication: Cerebrovascular disorder
     Dosage: 500 MILLIGRAM, ONCE A DAY
     Route: 048

REACTIONS (12)
  - Lactic acidosis [Recovering/Resolving]
  - Altered state of consciousness [Recovering/Resolving]
  - Fatigue [Recovering/Resolving]
  - Seizure [Recovering/Resolving]
  - Hyperglycaemia [Recovering/Resolving]
  - Metabolic acidosis [Recovering/Resolving]
  - Restlessness [Recovering/Resolving]
  - Blood bicarbonate decreased [Recovering/Resolving]
  - Blood lactic acid increased [Recovering/Resolving]
  - Acute kidney injury [Recovering/Resolving]
  - Blood creatine increased [Unknown]
  - Coma acidotic [Recovering/Resolving]
